FAERS Safety Report 21129508 (Version 4)
Quarter: 2022Q3

REPORT INFORMATION
  Report Type: Report from Study
  Country: ES (occurrence: ES)
  Receive Date: 20220726
  Receipt Date: 20220830
  Transmission Date: 20221027
  Serious: Yes (Other)
  Sender: FDA-Public Use
  Company Number: ES-ABBVIE-22K-144-4479555-00

PATIENT
  Sex: Male

DRUGS (2)
  1. CARBIDOPA\LEVODOPA [Suspect]
     Active Substance: CARBIDOPA\LEVODOPA
     Indication: Parkinson^s disease
     Route: 050
     Dates: start: 20220624, end: 2022
  2. CARBIDOPA\LEVODOPA [Suspect]
     Active Substance: CARBIDOPA\LEVODOPA
     Route: 050
     Dates: start: 2022

REACTIONS (15)
  - Cerebral disorder [Not Recovered/Not Resolved]
  - Feeling abnormal [Unknown]
  - Communication disorder [Recovered/Resolved]
  - Nightmare [Recovering/Resolving]
  - Device issue [Recovered/Resolved]
  - Bradyphrenia [Recovered/Resolved]
  - Wrong technique in device usage process [Unknown]
  - Clumsiness [Not Recovered/Not Resolved]
  - Abnormal dreams [Recovered/Resolved]
  - Asthenia [Not Recovered/Not Resolved]
  - Fatigue [Not Recovered/Not Resolved]
  - Malaise [Not Recovered/Not Resolved]
  - Therapeutic product effect incomplete [Unknown]
  - Bradykinesia [Not Recovered/Not Resolved]
  - Constipation [Recovering/Resolving]

NARRATIVE: CASE EVENT DATE: 20220101
